FAERS Safety Report 9610680 (Version 1)
Quarter: 2013Q4

REPORT INFORMATION
  Report Type: Report from Study
  Country: JP (occurrence: JP)
  Receive Date: 20131009
  Receipt Date: 20131009
  Transmission Date: 20140711
  Serious: Yes (Life-Threatening, Hospitalization, Other)
  Sender: FDA-Public Use
  Company Number: JP-TAKEDA-TCI2013A04071

PATIENT
  Age: 79 Year
  Sex: Female
  Weight: 39 kg

DRUGS (6)
  1. PIOGLITAZONE, METFORMIN [Suspect]
     Indication: TYPE 2 DIABETES MELLITUS
     Dosage: 1 UNK, QD
     Route: 048
     Dates: start: 20111219
  2. BASEN [Concomitant]
     Indication: TYPE 2 DIABETES MELLITUS
     Dosage: 0.9 MG, UNK
     Route: 048
  3. UNISIA COMBINATION TABLETS HD [Concomitant]
     Route: 048
  4. GLUFAST [Concomitant]
     Indication: TYPE 2 DIABETES MELLITUS
     Route: 048
  5. BUFFERIN COMBINATION TABLET A81 [Concomitant]
     Route: 048
  6. MAINTATE [Concomitant]
     Route: 048

REACTIONS (1)
  - Acute myocardial infarction [Recovering/Resolving]
